FAERS Safety Report 8052388-0 (Version None)
Quarter: 2012Q1

REPORT INFORMATION
  Report Type: 
  Country: None (occurrence: None)
  Receive Date: 20120118
  Receipt Date: 20120110
  Transmission Date: 20120608
  Serious: Yes (Hospitalization, Congenital Anomaly)
  Sender: FDA-Public Use
  Company Number: DK-UCBSA-8044947

PATIENT
  Sex: Male

DRUGS (5)
  1. FRISIUM [Suspect]
     Indication: EPILEPSY
     Route: 064
  2. DEPAKENE [Suspect]
     Indication: EPILEPSY
     Route: 064
  3. KEPPRA [Suspect]
     Indication: EPILEPSY
     Dosage: 4000 MG
     Route: 064
  4. ZONEGRAN [Suspect]
     Indication: EPILEPSY
     Dosage: 200 MG
     Route: 064
  5. PHENOBARBITAL TAB [Suspect]
     Indication: EPILEPSY
     Dosage: 180 MG
     Route: 064

REACTIONS (3)
  - EPILEPSY CONGENITAL [None]
  - FOETAL EXPOSURE DURING PREGNANCY [None]
  - CONGENITAL FOOT MALFORMATION [None]
